FAERS Safety Report 8965865 (Version 1)
Quarter: 2012Q4

REPORT INFORMATION
  Report Type: Spontaneous
  Country: IN (occurrence: None)
  Receive Date: 20121204
  Receipt Date: 20121204
  Transmission Date: 20130627
  Serious: Yes (Other)
  Sender: FDA-Public Use
  Company Number: 2012VX005140

PATIENT
  Age: 50 Year
  Sex: Female

DRUGS (1)
  1. HYDROQUINONE [Suspect]
     Indication: SKIN HYPERPIGMENTATION
     Route: 061

REACTIONS (2)
  - Ochronosis [None]
  - Incorrect drug administration duration [None]
